FAERS Safety Report 8532957-1 (Version None)
Quarter: 2012Q3

REPORT INFORMATION
  Report Type: 
  Country: None (occurrence: None)
  Receive Date: 20120724
  Receipt Date: 20120716
  Transmission Date: 20120928
  Serious: Yes (Other)
  Sender: FDA-Public Use
  Company Number: US-JNJFOC-20120707694

PATIENT
  Sex: Female
  Weight: 72.58 kg

DRUGS (1)
  1. REMICADE [Suspect]
     Indication: PSORIASIS
     Route: 042
     Dates: start: 20111101, end: 20120409

REACTIONS (6)
  - ASPARTATE AMINOTRANSFERASE INCREASED [None]
  - ARTHRALGIA [None]
  - CHEST PAIN [None]
  - WEIGHT DECREASED [None]
  - ANTINUCLEAR ANTIBODY POSITIVE [None]
  - ALANINE AMINOTRANSFERASE INCREASED [None]
